FAERS Safety Report 4678961-5 (Version None)
Quarter: 2005Q2

REPORT INFORMATION
  Report Type: 
  Country: None (occurrence: None)
  Receive Date: 20050531
  Receipt Date: 20050518
  Transmission Date: 20051028
  Serious: Yes (Other)
  Sender: FDA-Public Use
  Company Number: 2005076813

PATIENT
  Age: 76 Year
  Sex: Male
  Weight: 72.1219 kg

DRUGS (2)
  1. ZITHROMAX [Suspect]
     Indication: BRONCHITIS
     Dosage: (250 MG), ORAL
     Route: 048
     Dates: start: 20040901
  2. ZITHROMAX [Suspect]
     Indication: NASOPHARYNGITIS
     Dosage: (250 MG), ORAL
     Route: 048
     Dates: start: 20040901

REACTIONS (3)
  - BRONCHITIS [None]
  - NASOPHARYNGITIS [None]
  - PULMONARY CONGESTION [None]
